FAERS Safety Report 7035789-9 (Version None)
Quarter: 2010Q4

REPORT INFORMATION
  Report Type: 
  Country: None (occurrence: None)
  Receive Date: 20101007
  Receipt Date: 20101007
  Transmission Date: 20110411
  Serious: Yes (Hospitalization)
  Sender: FDA-Public Use
  Company Number: None

PATIENT
  Sex: Male
  Weight: 81.1939 kg

DRUGS (3)
  1. VANCOMYCIN HCL [Suspect]
     Indication: PREOPERATIVE CARE
     Dosage: 1G/250ML ONCE IV
     Route: 042
     Dates: start: 20100929, end: 20100929
  2. VANCOMYCIN HCL [Suspect]
     Indication: PROPHYLAXIS
     Dosage: 1G/250ML ONCE IV
     Route: 042
     Dates: start: 20100929, end: 20100929
  3. SODIUM CHLORIDE [Suspect]

REACTIONS (14)
  - CHEST DISCOMFORT [None]
  - CHILLS [None]
  - COUGH [None]
  - DEPRESSED LEVEL OF CONSCIOUSNESS [None]
  - DIZZINESS [None]
  - DRUG HYPERSENSITIVITY [None]
  - DYSPNOEA [None]
  - FEELING COLD [None]
  - HYPOTENSION [None]
  - HYPOXIA [None]
  - MALAISE [None]
  - PRODUCT CONTAMINATION [None]
  - SPUTUM ABNORMAL [None]
  - TREMOR [None]
